FAERS Safety Report 10412919 (Version 1)
Quarter: 2014Q3

REPORT INFORMATION
  Report Type: Spontaneous
  Country: US (occurrence: None)
  Receive Date: 20140826
  Receipt Date: 20140826
  Transmission Date: 20150326
  Serious: Yes (Disabling, Other)
  Sender: FDA-Public Use
  Company Number: None

PATIENT
  Age: 56 Year
  Sex: Female
  Weight: 50.8 kg

DRUGS (2)
  1. GENERIC CYMBALTA [Suspect]
     Active Substance: DULOXETINE HYDROCHLORIDE
     Indication: ANXIETY
     Dosage: 30MG 3X A DAY, THREE TIMES DAILY, TAKEN BY MOUTH
     Route: 048
     Dates: end: 20140825
  2. GENERIC CYMBALTA [Suspect]
     Active Substance: DULOXETINE HYDROCHLORIDE
     Indication: DEPRESSION
     Dosage: 30MG 3X A DAY, THREE TIMES DAILY, TAKEN BY MOUTH
     Route: 048
     Dates: end: 20140825

REACTIONS (8)
  - Vomiting [None]
  - Drug resistance [None]
  - Anxiety [None]
  - Drug ineffective [None]
  - Crying [None]
  - Hallucination [None]
  - Depression [None]
  - Product substitution issue [None]

NARRATIVE: CASE EVENT DATE: 20140201
